FAERS Safety Report 12061035 (Version 1)
Quarter: 2016Q1

REPORT INFORMATION
  Report Type: Spontaneous
  Country: AT (occurrence: AT)
  Receive Date: 20160210
  Receipt Date: 20160210
  Transmission Date: 20160526
  Serious: Yes (Other)
  Sender: FDA-Public Use
  Company Number: AT-PFIZER INC-2016069206

PATIENT
  Age: 73 Year
  Sex: Female
  Weight: 58.6 kg

DRUGS (36)
  1. RIVOTRIL [Suspect]
     Active Substance: CLONAZEPAM
     Dosage: 2.75 MG, UNK
     Dates: start: 20140218, end: 20140218
  2. PRAXITEN [Concomitant]
     Active Substance: OXAZEPAM
     Dosage: 45 MG, UNK
     Dates: start: 20140128, end: 20140128
  3. PRAXITEN [Concomitant]
     Active Substance: OXAZEPAM
     Dosage: UNK
  4. RIVOTRIL [Suspect]
     Active Substance: CLONAZEPAM
     Dosage: 2.25 MG, UNK
     Dates: start: 20140227
  5. SEROQUEL XR [Concomitant]
     Active Substance: QUETIAPINE FUMARATE
     Dosage: 200 MG, UNK
     Dates: start: 2013, end: 20140131
  6. PRAXITEN [Concomitant]
     Active Substance: OXAZEPAM
     Dosage: 22.5 MG, UNK
     Dates: start: 20140131, end: 20140131
  7. THYREX [Concomitant]
     Active Substance: LEVOTHYROXINE SODIUM
     Dosage: 50 UG, SINCE YEARS
  8. SEROQUEL [Concomitant]
     Active Substance: QUETIAPINE FUMARATE
     Dosage: 100 MG, UNK
     Dates: start: 2013, end: 20140127
  9. THROMBO ASS [Concomitant]
     Active Substance: ASPIRIN
     Dosage: 100 MG, SINCE YEARS
  10. LYRICA [Suspect]
     Active Substance: PREGABALIN
     Dosage: 100 MG, UNK
     Dates: start: 20140226
  11. ZOLDEM [Suspect]
     Active Substance: ZOLPIDEM TARTRATE
     Dosage: 10 MG, UNK
     Dates: start: 20140121
  12. RIVOTRIL [Suspect]
     Active Substance: CLONAZEPAM
     Dosage: 2 MG, UNK
     Dates: start: 20140130, end: 20140130
  13. RIVOTRIL [Suspect]
     Active Substance: CLONAZEPAM
     Dosage: 3 MG, UNK
     Dates: start: 20140204, end: 20140217
  14. RIVOTRIL [Suspect]
     Active Substance: CLONAZEPAM
     Dosage: 0.75 MG, UNK
     Dates: start: 20140226, end: 20140226
  15. BURONIL [Concomitant]
     Active Substance: MELPERONE HYDROCHLORIDE
     Dosage: 50 MG, UNK
     Dates: start: 20140206, end: 20140206
  16. TRESLEEN [Suspect]
     Active Substance: SERTRALINE HYDROCHLORIDE
     Dosage: 50 MG, UNK
     Dates: start: 20140122
  17. LYRICA [Suspect]
     Active Substance: PREGABALIN
     Dosage: 75 MG, UNK
     Dates: start: 20140207, end: 20140224
  18. RIVOTRIL [Suspect]
     Active Substance: CLONAZEPAM
     Dosage: 1 MG, UNK
     Dates: start: 20140123, end: 20140128
  19. SEROQUEL [Concomitant]
     Active Substance: QUETIAPINE FUMARATE
     Dosage: 50 MG, UNK
     Dates: start: 20140128, end: 20140128
  20. SEROQUEL [Concomitant]
     Active Substance: QUETIAPINE FUMARATE
     Dosage: 25 MG, UNK
     Dates: start: 20140129, end: 20140129
  21. PRAXITEN [Concomitant]
     Active Substance: OXAZEPAM
     Dosage: 60 MG, UNK
     Dates: start: 201401, end: 20140127
  22. PRAXITEN [Concomitant]
     Active Substance: OXAZEPAM
     Dosage: 15 MG, UNK
     Dates: start: 20140201, end: 20140201
  23. BURONIL [Concomitant]
     Active Substance: MELPERONE HYDROCHLORIDE
     Dosage: 25 MG, UNK
     Dates: start: 20140123, end: 20140126
  24. BURONIL [Concomitant]
     Active Substance: MELPERONE HYDROCHLORIDE
     Dosage: 75 MG, UNK
     Dates: start: 20140128, end: 20140205
  25. LYRICA [Suspect]
     Active Substance: PREGABALIN
     Dosage: 50 MG, UNK
     Dates: start: 20140206, end: 20140206
  26. LYRICA [Suspect]
     Active Substance: PREGABALIN
     Dosage: 125 MG, UNK
     Dates: start: 20140225, end: 20140225
  27. RIVOTRIL [Suspect]
     Active Substance: CLONAZEPAM
     Dosage: 1.5 MG, UNK
     Dates: start: 20140129, end: 20140129
  28. RIVOTRIL [Suspect]
     Active Substance: CLONAZEPAM
     Dosage: 2.5 MG, UNK
     Dates: start: 20140131, end: 20140203
  29. PANTOLOC [Suspect]
     Active Substance: PANTOPRAZOLE SODIUM
     Dosage: 40 MG, SINCE YEARS
  30. PRAXITEN [Concomitant]
     Active Substance: OXAZEPAM
     Dosage: 37.5 MG, UNK
     Dates: start: 20140129, end: 20140129
  31. PRAXITEN [Concomitant]
     Active Substance: OXAZEPAM
     Dosage: 7.5 MG, UNK
     Dates: start: 20140202, end: 20140202
  32. ZYPREXA [Suspect]
     Active Substance: OLANZAPINE
     Dosage: 2.5 MG, UNK
     Dates: start: 20140121
  33. RIVOTRIL [Suspect]
     Active Substance: CLONAZEPAM
     Dosage: 2.5 MG, UNK
     Dates: start: 20140219, end: 20140224
  34. PRAXITEN [Concomitant]
     Active Substance: OXAZEPAM
     Dosage: 30 MG, UNK
     Dates: start: 20140130, end: 20140130
  35. BURONIL [Concomitant]
     Active Substance: MELPERONE HYDROCHLORIDE
     Dosage: 50 MG, UNK
     Dates: start: 20140127, end: 20140127
  36. RIVOTRIL [Suspect]
     Active Substance: CLONAZEPAM
     Dosage: 2.75 MG, UNK
     Dates: start: 20140225, end: 20140225

REACTIONS (3)
  - Head injury [Unknown]
  - Fall [Recovered/Resolved]
  - Scapula fracture [Unknown]

NARRATIVE: CASE EVENT DATE: 20140226
